FAERS Safety Report 9920171 (Version 2)
Quarter: 2014Q2

REPORT INFORMATION
  Report Type: Spontaneous
  Country: DE (occurrence: DE)
  Receive Date: 20140224
  Receipt Date: 20140515
  Transmission Date: 20141212
  Serious: Yes (Other)
  Sender: FDA-Public Use
  Company Number: DE-UCBSA-113002

PATIENT
  Age: 70 Year
  Sex: Male

DRUGS (6)
  1. VIMPAT [Suspect]
     Dosage: 200 MG DAILY
     Dates: start: 201306, end: 201403
  2. KEPPRA [Suspect]
     Dosage: 1000 MG - 0 -1000 MG
  3. SORTIS [Concomitant]
  4. NEXIUM [Concomitant]
  5. ASS [Concomitant]
  6. BISOPROLOL [Concomitant]

REACTIONS (1)
  - Cataract [Unknown]
